FAERS Safety Report 7450932-5 (Version None)
Quarter: 2011Q2

REPORT INFORMATION
  Report Type: 
  Country: None (occurrence: None)
  Receive Date: 20110502
  Receipt Date: 20110425
  Transmission Date: 20111010
  Serious: Yes (Other)
  Sender: FDA-Public Use
  Company Number: US-PFIZER INC-2011090569

PATIENT
  Sex: Male

DRUGS (1)
  1. VIAGRA [Suspect]
     Indication: PROMOTION OF WOUND HEALING
     Dosage: UNK FOR 4 MONTHS
     Dates: end: 20110425

REACTIONS (1)
  - ATRIOVENTRICULAR BLOCK [None]
